FAERS Safety Report 5400166-0 (Version None)
Quarter: 2007Q3

REPORT INFORMATION
  Report Type: 
  Country: None (occurrence: None)
  Receive Date: 20070730
  Receipt Date: 20070720
  Transmission Date: 20080115
  Serious: Yes (Other)
  Sender: FDA-Public Use
  Company Number: PT-AMGEN-UK235674

PATIENT
  Sex: Male

DRUGS (4)
  1. MIMPARA [Suspect]
     Indication: HYPERPARATHYROIDISM SECONDARY
  2. ZIDOVUDINE [Concomitant]
  3. TENOFOVIR DISOPROXIL FUMARAT [Concomitant]
     Route: 065
  4. RITONAVIR [Concomitant]
     Route: 065

REACTIONS (1)
  - VIRAL LOAD INCREASED [None]
